FAERS Safety Report 21492783 (Version 1)
Quarter: 2022Q4

REPORT INFORMATION
  Report Type: Spontaneous
  Country: US (occurrence: None)
  Receive Date: 20221020
  Receipt Date: 20221020
  Transmission Date: 20230113
  Serious: Yes (Other)
  Sender: FDA-Public Use
  Company Number: None

PATIENT
  Age: 14 Year
  Sex: Male

DRUGS (1)
  1. ENBREL [Suspect]
     Active Substance: ETANERCEPT
     Indication: Chronic recurrent multifocal osteomyelitis
     Dosage: FREQUENCY : WEEKLY;?
     Route: 058
     Dates: end: 20220901

REACTIONS (5)
  - Rash vesicular [None]
  - Injection site hypersensitivity [None]
  - Device use issue [None]
  - Rubber sensitivity [None]
  - Injection site pain [None]
